FAERS Safety Report 10652908 (Version 1)
Quarter: 2014Q4

REPORT INFORMATION
  Report Type: Spontaneous
  Country: US (occurrence: US)
  Receive Date: 20141215
  Receipt Date: 20141215
  Transmission Date: 20150529
  Serious: No
  Sender: FDA-Public Use
  Company Number: US-GLAXOSMITHKLINE-US2014GSK015433

PATIENT
  Age: 28 Year
  Sex: Female

DRUGS (1)
  1. NICODERM CQ [Suspect]
     Active Substance: NICOTINE
     Indication: SMOKING CESSATION THERAPY
     Dosage: 14 MG, UNK
     Dates: start: 20141029

REACTIONS (13)
  - Overdose [Recovered/Resolved]
  - Abnormal dreams [Recovered/Resolved]
  - Thirst [Recovered/Resolved]
  - Palpitations [Recovered/Resolved]
  - Nausea [Recovered/Resolved]
  - Application site pain [Recovered/Resolved]
  - Initial insomnia [Recovered/Resolved]
  - Dizziness [Recovered/Resolved]
  - Application site erythema [Recovered/Resolved]
  - Product quality issue [Unknown]
  - Application site paraesthesia [Recovered/Resolved]
  - Feeling abnormal [Recovered/Resolved]
  - Fatigue [Recovered/Resolved]

NARRATIVE: CASE EVENT DATE: 20141029
